FAERS Safety Report 19214278 (Version 1)
Quarter: 2021Q2

REPORT INFORMATION
  Report Type: Report from Study
  Country: None (occurrence: US)
  Receive Date: 20210505
  Receipt Date: 20210505
  Transmission Date: 20210717
  Serious: Yes (Hospitalization)
  Sender: FDA-Public Use
  Company Number: US-ABBVIE-21K-163-3882589-00

PATIENT
  Sex: Female

DRUGS (2)
  1. HUMIRA [Suspect]
     Active Substance: ADALIMUMAB
     Route: 058
     Dates: start: 202103, end: 2021
  2. HUMIRA [Suspect]
     Active Substance: ADALIMUMAB
     Indication: COLITIS ULCERATIVE
     Route: 058
     Dates: start: 2019, end: 202012

REACTIONS (16)
  - Brain injury [Unknown]
  - Fear [Unknown]
  - Unevaluable event [Unknown]
  - Flatulence [Unknown]
  - Frequent bowel movements [Unknown]
  - Anxiety [Unknown]
  - Abdominal distension [Unknown]
  - Fatigue [Unknown]
  - Depressed mood [Unknown]
  - Insomnia [Unknown]
  - Gastrointestinal tube insertion [Unknown]
  - Decreased appetite [Unknown]
  - Defaecation urgency [Unknown]
  - Diarrhoea [Unknown]
  - Loss of personal independence in daily activities [Unknown]
  - Proctalgia [Unknown]
